FAERS Safety Report 13504857 (Version 2)
Quarter: 2017Q2

REPORT INFORMATION
  Report Type: Spontaneous
  Country: US (occurrence: US)
  Receive Date: 20170502
  Receipt Date: 20170502
  Transmission Date: 20170830
  Serious: No
  Sender: FDA-Public Use
  Company Number: US-CIPLA LTD.-2017US04533

PATIENT

DRUGS (2)
  1. TOPIRAMATE. [Suspect]
     Active Substance: TOPIRAMATE
     Indication: BIPOLAR DISORDER
     Dosage: 100 MG, QID
     Route: 048
     Dates: start: 201701, end: 20170301
  2. TOPIRAMATE. [Suspect]
     Active Substance: TOPIRAMATE
     Dosage: 200 MG, BID
     Route: 048
     Dates: start: 20170302

REACTIONS (3)
  - Gastritis [Recovered/Resolved]
  - Therapeutic product ineffective for unapproved indication [Unknown]
  - Medication residue present [Unknown]

NARRATIVE: CASE EVENT DATE: 201702
